FAERS Safety Report 15950504 (Version 1)
Quarter: 2019Q1

REPORT INFORMATION
  Report Type: Spontaneous
  Country: CA (occurrence: CA)
  Receive Date: 20190211
  Receipt Date: 20190211
  Transmission Date: 20190417
  Serious: Yes (Other)
  Sender: FDA-Public Use
  Company Number: CA-INDIVIOR LIMITED-INDV-117585-2019

PATIENT
  Age: 37 Year
  Sex: Male
  Weight: 65.76 kg

DRUGS (1)
  1. BUPRENORPHINE/NALOXONE [Suspect]
     Active Substance: BUPRENORPHINE\NALOXONE
     Indication: DRUG WITHDRAWAL SYNDROME
     Dosage: 8 MILLIGRAM, QD
     Route: 060

REACTIONS (5)
  - Nausea [Recovered/Resolved]
  - Product taste abnormal [Recovered/Resolved]
  - Substance use [Recovered/Resolved]
  - Drug withdrawal syndrome [Recovered/Resolved]
  - Product substitution issue [Recovered/Resolved]
